FAERS Safety Report 5446539-1 (Version None)
Quarter: 2007Q3

REPORT INFORMATION
  Report Type: 
  Country: None (occurrence: None)
  Receive Date: 20070907
  Receipt Date: 20070904
  Transmission Date: 20080115
  Serious: Yes (Hospitalization, Other)
  Sender: FDA-Public Use
  Company Number: US-PFIZER INC-2007043691

PATIENT
  Sex: Female

DRUGS (1)
  1. CELEBREX [Suspect]

REACTIONS (2)
  - CEREBROVASCULAR ACCIDENT [None]
  - HEART INJURY [None]
